FAERS Safety Report 7051809-X (Version None)
Quarter: 2010Q4

REPORT INFORMATION
  Report Type: 
  Country: None (occurrence: None)
  Receive Date: 20101019
  Receipt Date: 20101014
  Transmission Date: 20110411
  Serious: Yes (Other)
  Sender: FDA-Public Use
  Company Number: JP-SANOFI-AVENTIS-2010SA045648

PATIENT
  Age: 77 Year
  Sex: Male
  Weight: 55 kg

DRUGS (9)
  1. RASURITEK INTRAVENOUS [Suspect]
     Indication: DIFFUSE LARGE B-CELL LYMPHOMA
     Route: 041
     Dates: start: 20100716, end: 20100720
  2. KYTRIL [Suspect]
     Indication: PROPHYLAXIS
     Route: 042
     Dates: start: 20100716, end: 20100716
  3. THERARUBICIN [Suspect]
     Route: 042
     Dates: start: 20100716, end: 20100716
  4. ONCOVIN [Suspect]
     Route: 042
     Dates: start: 20100716, end: 20100716
  5. ENDOXAN [Suspect]
     Route: 042
     Dates: start: 20100716, end: 20100716
  6. PREDONINE [Suspect]
     Route: 048
     Dates: start: 20100716, end: 20100720
  7. GASTER [Suspect]
     Indication: PROPHYLAXIS
     Route: 048
     Dates: start: 20100716
  8. BAKTAR [Suspect]
     Indication: PROPHYLAXIS
     Route: 048
     Dates: start: 20100716
  9. FLUCONAZOLE [Suspect]
     Indication: PROPHYLAXIS
     Route: 048
     Dates: start: 20100716

REACTIONS (1)
  - LIVER DISORDER [None]
